FAERS Safety Report 11131194 (Version 2)
Quarter: 2015Q2

REPORT INFORMATION
  Report Type: Spontaneous
  Country: US (occurrence: None)
  Receive Date: 20150520
  Receipt Date: 20150608
  Transmission Date: 20150821
  Serious: Yes (Other)
  Sender: FDA-Public Use
  Company Number: 2015SA059756

PATIENT
  Age: 53 Year
  Sex: Female

DRUGS (2)
  1. ICY HOT ADVANCED RELIEF (CAMPHOR (SYNTHETIC)\MENTHOL) [Suspect]
     Active Substance: CAMPHOR (SYNTHETIC)\MENTHOL
     Indication: BACK PAIN
     Dates: start: 20150420
  2. ICY HOT ADVANCED RELIEF (CAMPHOR (SYNTHETIC)\MENTHOL) [Suspect]
     Active Substance: CAMPHOR (SYNTHETIC)\MENTHOL
     Indication: LIGAMENT SPRAIN
     Dates: start: 20150420

REACTIONS (6)
  - Product quality issue [None]
  - Scab [None]
  - Pruritus [None]
  - Application site burn [None]
  - Burns second degree [None]
  - Skin exfoliation [None]

NARRATIVE: CASE EVENT DATE: 201504
